FAERS Safety Report 6594732-7 (Version None)
Quarter: 2010Q1

REPORT INFORMATION
  Report Type: 
  Country: None (occurrence: None)
  Receive Date: 20100222
  Receipt Date: 20100211
  Transmission Date: 20100710
  Serious: Yes (Hospitalization)
  Sender: FDA-Public Use
  Company Number: GB-AMGEN-US376585

PATIENT
  Sex: Male
  Weight: 102 kg

DRUGS (6)
  1. ENBREL [Suspect]
     Indication: RHEUMATOID ARTHRITIS
     Route: 058
     Dates: start: 20030808
  2. PERINDOPRIL [Concomitant]
     Dosage: UNKNOWN
     Route: 065
  3. QUININE SULFATE [Concomitant]
     Dosage: UNKNOWN
     Route: 065
  4. AMLODIPINE [Concomitant]
     Dosage: UNKNOWN
     Route: 065
  5. ASPIRIN [Concomitant]
     Dosage: UNKNOWN
     Route: 065
  6. LANSOPRAZOLE [Concomitant]
     Dosage: UNKNOWN
     Route: 065

REACTIONS (2)
  - COLITIS [None]
  - RECTAL ADENOMA [None]
